FAERS Safety Report 9819782 (Version 1)
Quarter: 2014Q1

REPORT INFORMATION
  Report Type: Spontaneous
  Country: JP (occurrence: JP)
  Receive Date: 20140116
  Receipt Date: 20140116
  Transmission Date: 20141002
  Serious: Yes (Death, Other)
  Sender: FDA-Public Use
  Company Number: JP-ROCHE-1333416

PATIENT
  Age: 70 Year
  Sex: Female
  Weight: 56 kg

DRUGS (5)
  1. AVASTIN [Suspect]
     Indication: BREAST CANCER METASTATIC
     Route: 041
     Dates: start: 20121206, end: 20121228
  2. PACLITAXEL [Suspect]
     Indication: BREAST CANCER METASTATIC
     Dosage: THREE TIMES PER FOUR WEEKS
     Route: 042
     Dates: start: 20121206, end: 20121228
  3. GASTER (JAPAN) [Concomitant]
     Indication: ALLERGY PROPHYLAXIS
     Route: 042
     Dates: start: 20121206, end: 20121228
  4. DECADRON [Concomitant]
     Indication: ALLERGY PROPHYLAXIS
     Dosage: DOSAGE IS UNCERTAIN.
     Route: 042
     Dates: start: 20121206, end: 20121228
  5. RESTAMIN [Concomitant]
     Indication: ALLERGY PROPHYLAXIS
     Route: 048
     Dates: start: 20121206, end: 20121228

REACTIONS (2)
  - Disease progression [Fatal]
  - Neutrophil count decreased [Recovered/Resolved]
